FAERS Safety Report 9399043 (Version 1)
Quarter: 2013Q3

REPORT INFORMATION
  Report Type: Spontaneous
  Country: AU (occurrence: AU)
  Receive Date: 20130715
  Receipt Date: 20130715
  Transmission Date: 20140515
  Serious: Yes (Hospitalization, Other)
  Sender: FDA-Public Use
  Company Number: AU-ROCHE-1247751

PATIENT
  Age: 87 Year
  Sex: Male

DRUGS (9)
  1. NAPROXEN [Suspect]
     Indication: PAIN
     Route: 065
     Dates: start: 20130403, end: 20130413
  2. ATENOLOL [Concomitant]
     Route: 065
  3. CIPROFLOXACIN [Concomitant]
     Route: 065
  4. DICLOXACILLIN SODIUM [Concomitant]
     Route: 065
  5. FERRO-F-TAB [Concomitant]
  6. LERCANIDIPINE [Concomitant]
     Route: 065
  7. METFORMIN HYDROCHLORIDE [Concomitant]
     Route: 065
  8. PARACETAMOL [Concomitant]
     Route: 065
  9. PRAZOSIN HCL [Concomitant]
     Route: 065

REACTIONS (3)
  - Anaemia [Not Recovered/Not Resolved]
  - Gastrointestinal haemorrhage [Not Recovered/Not Resolved]
  - Dehydration [Unknown]
